FAERS Safety Report 9826827 (Version 1)
Quarter: 2014Q1

REPORT INFORMATION
  Report Type: Spontaneous
  Country: US (occurrence: None)
  Receive Date: 20140116
  Receipt Date: 20140116
  Transmission Date: 20141002
  Serious: Yes (Other)
  Sender: FDA-Public Use
  Company Number: None

PATIENT
  Age: 85 Year
  Sex: Female
  Weight: 44 kg

DRUGS (14)
  1. LIDOCAINE [Suspect]
     Dosage: 700 MG (50 MG PER GRAM ADHESIVE) ?30 PATCHES?APPLY ONE PATCH + LEAVE ON FOR 12 HOURS REMOVE FOR 12 HOURS?ON THE SKIN
     Dates: start: 20130928, end: 20131010
  2. GABAPENTIN [Concomitant]
  3. HYDROXYZINE HCL [Concomitant]
  4. LIDODERM 5% PATCH [Concomitant]
  5. FENTANYL [Concomitant]
  6. FOLBIC [Concomitant]
  7. RESTASIS 0.05% EYE EMULSION [Concomitant]
  8. AMOXICILLIN [Concomitant]
  9. ASPIRIN [Concomitant]
  10. OSCAL [Concomitant]
  11. CALCIUM +D3 [Concomitant]
  12. MULTI-VITAMINS [Concomitant]
  13. THERATEARS [Concomitant]
  14. MURO OINTMENT [Concomitant]

REACTIONS (2)
  - Product quality issue [None]
  - Product substitution issue [None]
